FAERS Safety Report 4423370-7 (Version None)
Quarter: 2004Q3

REPORT INFORMATION
  Report Type: 
  Country: None (occurrence: None)
  Receive Date: 20040811
  Receipt Date: 20040804
  Transmission Date: 20050211
  Serious: Yes (Other)
  Sender: FDA-Public Use
  Company Number: PHBS2004TH10324

PATIENT
  Age: 18 Year
  Sex: Female

DRUGS (8)
  1. CYCLOSPORINE [Suspect]
     Indication: STEM CELL TRANSPLANT
     Route: 065
  2. MYCOPHENOLATE MOFETIL [Suspect]
     Indication: STEM CELL TRANSPLANT
     Dosage: 1.5 G/D
     Route: 065
  3. BUSULFAN [Suspect]
     Indication: STEM CELL TRANSPLANT
     Dosage: 2 MG/KG, BID
     Route: 048
  4. FLUDARABINE PHOSPHATE [Suspect]
     Indication: STEM CELL TRANSPLANT
     Dosage: 35 MG/M2/D
  5. ANTILYMPHOCYTE GLOBULIN [Suspect]
     Indication: STEM CELL TRANSPLANT
     Dosage: 5 MG/KG/D
  6. IRRADIATION [Concomitant]
  7. RED BLOOD CELLS [Concomitant]
  8. PLATELETS [Concomitant]

REACTIONS (6)
  - BACTERIAL SEPSIS [None]
  - CYSTITIS HAEMORRHAGIC [None]
  - CYTOMEGALOVIRUS CHORIORETINITIS [None]
  - GRAFT VERSUS HOST DISEASE [None]
  - HERPES ZOSTER [None]
  - PNEUMONIA MYCOPLASMAL [None]
